FAERS Safety Report 10516103 (Version 2)
Quarter: 2014Q4

REPORT INFORMATION
  Report Type: Spontaneous
  Country: IT (occurrence: IT)
  Receive Date: 20141014
  Receipt Date: 20141014
  Transmission Date: 20150528
  Serious: Yes (Other)
  Sender: FDA-Public Use
  Company Number: IT-TEVA-513364ISR

PATIENT
  Age: 73 Year
  Sex: Male

DRUGS (4)
  1. MABTHERA [Suspect]
     Active Substance: RITUXIMAB
     Indication: B-CELL LYMPHOMA
     Route: 042
     Dates: start: 20140422, end: 20140515
  2. HOLOXAN [Suspect]
     Active Substance: IFOSFAMIDE
     Indication: B-CELL LYMPHOMA
     Route: 042
     Dates: start: 20140420, end: 20140517
  3. CARBOPLATINO TEVA [Suspect]
     Active Substance: CARBOPLATIN
     Indication: B-CELL LYMPHOMA
     Route: 042
     Dates: start: 20140420, end: 20140517
  4. ETOPOSIDE TEVA [Suspect]
     Active Substance: ETOPOSIDE
     Indication: B-CELL LYMPHOMA
     Route: 042
     Dates: start: 20140419, end: 20140518

REACTIONS (3)
  - Blood creatinine increased [Recovered/Resolved]
  - Hypokalaemia [Recovered/Resolved]
  - Renal impairment [Unknown]

NARRATIVE: CASE EVENT DATE: 20140520
